FAERS Safety Report 25388170 (Version 2)
Quarter: 2025Q2

REPORT INFORMATION
  Report Type: Spontaneous
  Country: US (occurrence: US)
  Receive Date: 20250603
  Receipt Date: 20250613
  Transmission Date: 20250716
  Serious: Yes (Other)
  Sender: TEVA
  Company Number: US-TEVA-VS-3336006

PATIENT
  Age: 57 Year
  Sex: Male

DRUGS (12)
  1. GEMCITABINE [Suspect]
     Active Substance: GEMCITABINE
     Indication: Pancreatic neuroendocrine tumour
     Route: 065
  2. FLUOROURACIL [Suspect]
     Active Substance: FLUOROURACIL
     Indication: Pancreatic neuroendocrine tumour
     Route: 065
  3. LAROTRECTINIB [Suspect]
     Active Substance: LAROTRECTINIB
     Indication: Pancreatic neuroendocrine tumour
     Route: 065
  4. OXALIPLATIN [Suspect]
     Active Substance: OXALIPLATIN
     Indication: Pancreatic neuroendocrine tumour
     Route: 065
  5. IPILIMUMAB [Suspect]
     Active Substance: IPILIMUMAB
     Indication: Pancreatic neuroendocrine tumour
     Route: 065
  6. SELITRECTINIB [Suspect]
     Active Substance: SELITRECTINIB
     Indication: Pancreatic neuroendocrine tumour
     Route: 065
  7. LEUCOVORIN [Suspect]
     Active Substance: LEUCOVORIN\LEUCOVORIN CALCIUM
     Indication: Pancreatic neuroendocrine tumour
     Route: 065
  8. REPOTRECTINIB [Suspect]
     Active Substance: REPOTRECTINIB
     Indication: Pancreatic neuroendocrine tumour
     Route: 065
     Dates: start: 2022
  9. REPOTRECTINIB [Suspect]
     Active Substance: REPOTRECTINIB
     Indication: Pancreatic neuroendocrine tumour
     Route: 065
     Dates: start: 202203, end: 2022
  10. ETOPOSIDE [Suspect]
     Active Substance: ETOPOSIDE
     Indication: Pancreatic neuroendocrine tumour
     Route: 065
  11. CARBOPLATIN [Suspect]
     Active Substance: CARBOPLATIN
     Indication: Pancreatic neuroendocrine tumour
     Route: 065
  12. NIVOLUMAB [Suspect]
     Active Substance: NIVOLUMAB
     Indication: Pancreatic neuroendocrine tumour
     Route: 065

REACTIONS (9)
  - Pulmonary embolism [Unknown]
  - Nausea [Unknown]
  - Rash [Unknown]
  - Diarrhoea [Unknown]
  - Fatigue [Unknown]
  - Drug resistance [Unknown]
  - Off label use [Unknown]
  - Neuropathy peripheral [Unknown]
  - Feeling cold [Unknown]
